FAERS Safety Report 15630055 (Version 1)
Quarter: 2018Q4

REPORT INFORMATION
  Report Type: Other
  Country: TN (occurrence: TN)
  Receive Date: 20181118
  Receipt Date: 20181118
  Transmission Date: 20190205
  Serious: Yes (Hospitalization, Other)
  Sender: FDA-Public Use
  Company Number: TN-DEXPHARM-20180884

PATIENT
  Age: 53 Year
  Sex: Female

DRUGS (5)
  1. DICLOFENAC [Suspect]
     Active Substance: DICLOFENAC
     Indication: BACK PAIN
     Dosage: 50 MG DAILY
  2. MEFENAMIC ACID. [Suspect]
     Active Substance: MEFENAMIC ACID
  3. AMOXICILLINE [Suspect]
     Active Substance: AMOXICILLIN
  4. PARACETAMOL [Suspect]
     Active Substance: ACETAMINOPHEN
  5. CETIRIZINE [Suspect]
     Active Substance: CETIRIZINE HYDROCHLORIDE

REACTIONS (1)
  - Drug reaction with eosinophilia and systemic symptoms [Recovering/Resolving]
